FAERS Safety Report 13856369 (Version 2)
Quarter: 2018Q1

REPORT INFORMATION
  Report Type: Spontaneous
  Country: US (occurrence: US)
  Receive Date: 20170810
  Receipt Date: 20180201
  Transmission Date: 20180508
  Serious: No
  Sender: FDA-Public Use
  Company Number: US-ACTELION-A-NJ2017-157801

PATIENT
  Age: 54 Year
  Sex: Female
  Weight: 62.13 kg

DRUGS (3)
  1. ADEMPAS [Suspect]
     Active Substance: RIOCIGUAT
     Indication: PRODUCT USED FOR UNKNOWN INDICATION
     Route: 065
  2. TYVASO [Suspect]
     Active Substance: TREPROSTINIL
     Indication: PULMONARY ARTERIAL HYPERTENSION
     Dosage: 18-54 MCG, 3-9 BREATHS, QID
     Route: 055
     Dates: start: 20160913
  3. OPSUMIT [Suspect]
     Active Substance: MACITENTAN
     Indication: PULMONARY ARTERIAL HYPERTENSION
     Dosage: 10 MG, QD
     Route: 048

REACTIONS (10)
  - Dyspnoea exertional [Unknown]
  - Dyspepsia [Unknown]
  - Nasal congestion [Unknown]
  - Fatigue [Unknown]
  - Sinus pain [Unknown]
  - Sinus congestion [Unknown]
  - Dizziness [Unknown]
  - Madarosis [Unknown]
  - Chest pain [Unknown]
  - Alopecia [Unknown]

NARRATIVE: CASE EVENT DATE: 201610
